FAERS Safety Report 10369407 (Version 1)
Quarter: 2014Q1

REPORT INFORMATION
  Report Type: Spontaneous
  Country: US (occurrence: None)
  Receive Date: 20140306
  Receipt Date: 20140306
  Transmission Date: 20141002
  Serious: Yes (Hospitalization)
  Sender: FDA-Public Use
  Company Number: 163-21880-13091382

PATIENT
  Age: 68 Year
  Sex: Male
  Weight: 79.4 kg

DRUGS (1)
  1. REVLIMID [Suspect]
     Indication: PLASMA CELL MYELOMA
     Dosage: 5 MG, 3 TIMES WEEKLY FOR 3 WEEKS ON THEN 1 OFF, PO
     Route: 048
     Dates: start: 20100318

REACTIONS (2)
  - Pneumonia [None]
  - Drug dose omission [None]
